FAERS Safety Report 4663988-X (Version None)
Quarter: 2005Q2

REPORT INFORMATION
  Report Type: 
  Country: None (occurrence: None)
  Receive Date: 20050427
  Receipt Date: 20050209
  Transmission Date: 20051028
  Serious: Yes (Other)
  Sender: FDA-Public Use
  Company Number: US-JNJFOC-20041008443

PATIENT
  Age: 46 Year
  Sex: Female

DRUGS (2)
  1. ULTRAM [Suspect]
     Indication: PAIN
     Dosage: 400 MG, IN 1 DAY, ORAL
     Route: 048
     Dates: start: 20040401, end: 20040901
  2. LEXAPRO [Suspect]
     Indication: DEPRESSION
     Dosage: 8 MG, IN 1 DAY, ORAL
     Route: 048
     Dates: start: 20030825

REACTIONS (1)
  - SEROTONIN SYNDROME [None]
